FAERS Safety Report 24257259 (Version 1)
Quarter: 2024Q3

REPORT INFORMATION
  Report Type: Spontaneous
  Country: US (occurrence: US)
  Receive Date: 20240828
  Receipt Date: 20240828
  Transmission Date: 20241017
  Serious: No
  Sender: GLAXOSMITHKLINE
  Company Number: US-GSKCCFUS-Case-02082478_AE-115130

PATIENT
  Sex: Female

DRUGS (2)
  1. TRELEGY ELLIPTA [Suspect]
     Active Substance: FLUTICASONE FUROATE\UMECLIDINIUM BROMIDE\VILANTEROL TRIFENATATE
     Indication: Product used for unknown indication
     Dosage: UNK, 100/62.5/25
     Dates: start: 20240613
  2. UNSPECIFIED INGREDIENT [Concomitant]
     Active Substance: UNSPECIFIED INGREDIENT
     Indication: Product used for unknown indication
     Dosage: UNK

REACTIONS (4)
  - Pain [Not Recovered/Not Resolved]
  - Burning sensation [Not Recovered/Not Resolved]
  - Muscle spasms [Not Recovered/Not Resolved]
  - Urinary tract infection [Not Recovered/Not Resolved]
